FAERS Safety Report 14364812 (Version 3)
Quarter: 2018Q4

REPORT INFORMATION
  Report Type: Report from Study
  Country: IL (occurrence: IL)
  Receive Date: 20180108
  Receipt Date: 20181221
  Transmission Date: 20190204
  Serious: Yes (Other)
  Sender: FDA-Public Use
  Company Number: IL-ACTELION-A-NJ2018-165464

PATIENT
  Age: 78 Year
  Sex: Female

DRUGS (6)
  1. VENTAVIS [Suspect]
     Active Substance: ILOPROST
     Indication: PULMONARY HYPERTENSION
     Dosage: UNK
     Route: 055
     Dates: start: 20130306
  2. ELTROXIN [Concomitant]
     Active Substance: LEVOTHYROXINE
  3. XARELTO [Suspect]
     Active Substance: RIVAROXABAN
     Indication: PRODUCT USED FOR UNKNOWN INDICATION
     Dosage: UNK
     Route: 048
  4. LAMICTAL [Concomitant]
     Active Substance: LAMOTRIGINE
  5. FUSID [FUSIDIC ACID] [Concomitant]
     Active Substance: FUSIDIC ACID
  6. LYRICA [Concomitant]
     Active Substance: PREGABALIN

REACTIONS (4)
  - Eyelid ptosis [Not Recovered/Not Resolved]
  - Haemarthrosis [Unknown]
  - Fall [Recovered/Resolved]
  - Contusion [Unknown]
